FAERS Safety Report 12594464 (Version 1)
Quarter: 2016Q3

REPORT INFORMATION
  Report Type: Spontaneous
  Country: US (occurrence: US)
  Receive Date: 20160726
  Receipt Date: 20160726
  Transmission Date: 20161109
  Serious: No
  Sender: FDA-Public Use
  Company Number: US-UNITED THERAPEUTICS-UNT-2015-015369

PATIENT
  Age: 53 Year
  Sex: Female
  Weight: 88.44 kg

DRUGS (4)
  1. ORENITRAM [Suspect]
     Active Substance: TREPROSTINIL
     Dosage: 0.75 MG, TID
     Route: 048
  2. ORENITRAM [Suspect]
     Active Substance: TREPROSTINIL
     Dosage: 1 MG, TID
     Route: 048
  3. ORENITRAM [Suspect]
     Active Substance: TREPROSTINIL
     Indication: PULMONARY ARTERIAL HYPERTENSION
     Dosage: 0.125 MG, TID
     Route: 048
     Dates: start: 20151123
  4. ORENITRAM [Suspect]
     Active Substance: TREPROSTINIL
     Dosage: UNK
     Route: 048

REACTIONS (11)
  - Migraine [Unknown]
  - Nausea [Unknown]
  - Pain in jaw [Unknown]
  - Somnolence [Unknown]
  - Diarrhoea [Unknown]
  - Hypotension [Unknown]
  - Headache [Unknown]
  - Vomiting [Unknown]
  - Pneumonia [Unknown]
  - Fatigue [Unknown]
  - Breast disorder [Unknown]

NARRATIVE: CASE EVENT DATE: 201512
